FAERS Safety Report 24638194 (Version 1)
Quarter: 2024Q4

REPORT INFORMATION
  Report Type: Spontaneous
  Country: AU (occurrence: AU)
  Receive Date: 20241119
  Receipt Date: 20241119
  Transmission Date: 20250115
  Serious: Yes (Life-Threatening, Hospitalization, Other)
  Sender: DAIICHI
  Company Number: AU-AstraZeneca-CH-00745791A

PATIENT
  Sex: Female

DRUGS (2)
  1. TRASTUZUMAB DERUXTECAN [Suspect]
     Active Substance: TRASTUZUMAB DERUXTECAN
     Indication: Breast cancer
     Dosage: UNK
     Route: 042
  2. TRASTUZUMAB DERUXTECAN [Suspect]
     Active Substance: TRASTUZUMAB DERUXTECAN
     Dosage: UNK
     Route: 042
     Dates: start: 2024

REACTIONS (5)
  - Vascular device infection [Unknown]
  - Sepsis [Recovered/Resolved]
  - Hyperbilirubinaemia [Unknown]
  - Urosepsis [Unknown]
  - Osteomyelitis [Unknown]
